FAERS Safety Report 20988726 (Version 1)
Quarter: 2022Q2

REPORT INFORMATION
  Report Type: Spontaneous
  Country: SE (occurrence: SE)
  Receive Date: 20220621
  Receipt Date: 20220621
  Transmission Date: 20220721
  Serious: Yes (Death)
  Sender: FDA-Public Use
  Company Number: None

PATIENT
  Sex: Male
  Weight: 80 kg

DRUGS (17)
  1. GEMCITABINE [Suspect]
     Active Substance: GEMCITABINE
     Indication: Pancreatic carcinoma metastatic
     Dosage: 1824 MG, 1000 MG/M2
     Route: 042
     Dates: start: 20210217
  2. GEMCITABINE [Suspect]
     Active Substance: GEMCITABINE
     Dosage: 1824 MG, 1000 MG/M2
     Route: 042
     Dates: start: 20210330
  3. GEMCITABINE [Suspect]
     Active Substance: GEMCITABINE
     Dosage: 1824 MG, 1000 MG/M2
     Route: 042
     Dates: start: 20210203
  4. GEMCITABINE [Suspect]
     Active Substance: GEMCITABINE
     Dosage: 1824 MG, 1000 MG/M2
     Route: 042
     Dates: start: 20210310
  5. COMIRNATY [Suspect]
     Active Substance: TOZINAMERAN
     Indication: Product used for unknown indication
     Dosage: DOS 2?CONCENTRATE FOR DISPERSION FOR INJECTION
     Dates: start: 20210304, end: 20210304
  6. COMIRNATY [Suspect]
     Active Substance: TOZINAMERAN
     Dosage: DOS 1
     Dates: start: 20210205
  7. Bisoprolol Sandos 2,5 mg Film coated tablet [Concomitant]
     Indication: Product used for unknown indication
     Route: 048
     Dates: start: 20200313
  8. Ondansetron Aurobindo 8 mg Film coated tablet [Concomitant]
     Indication: Product used for unknown indication
     Dosage: 8 MG 1 IN THE MORNING DAY 1 OF CHEMOTHERAPY
     Route: 048
     Dates: start: 20210127
  9. Sertralin Hexal 100 mg Film coated tablet [Concomitant]
     Indication: Product used for unknown indication
     Route: 048
     Dates: start: 20200522
  10. ESOMEPRAZOL KRKA 40 Mg [Concomitant]
     Indication: Product used for unknown indication
     Route: 048
     Dates: start: 20200520
  11. INSULIN HUMAN [Concomitant]
     Active Substance: INSULIN HUMAN
     Indication: Product used for unknown indication
     Dosage: 0+28+0+8
     Route: 058
     Dates: start: 20200506
  12. Atorbir 40 mg Film coated tablet [Concomitant]
     Indication: Product used for unknown indication
     Route: 048
     Dates: start: 20200522
  13. DIAZEPAM [Concomitant]
     Active Substance: DIAZEPAM
     Indication: Product used for unknown indication
     Dosage: 1 TABLET IF NEEDED FOR THE NIGHT
     Route: 048
     Dates: start: 20210127
  14. Acetylsalicylic acid teva [Concomitant]
     Indication: Product used for unknown indication
     Route: 048
     Dates: start: 20200522
  15. Furix [Concomitant]
     Indication: Product used for unknown indication
     Route: 048
     Dates: start: 20200522
  16. Betametason Alternova 0,5 mg Tablet [Concomitant]
     Indication: Product used for unknown indication
     Dosage: 8 TABLETTER P? DAG 1 AV CYSTOSTATIKABEHANDLING
     Route: 048
     Dates: start: 20210127
  17. ALLOPURINOL [Concomitant]
     Active Substance: ALLOPURINOL
     Indication: Product used for unknown indication
     Route: 048
     Dates: start: 20200506

REACTIONS (3)
  - Thrombocytopenia [Fatal]
  - Hepatic failure [Fatal]
  - Renal failure [Fatal]

NARRATIVE: CASE EVENT DATE: 20210316
